FAERS Safety Report 4443505-X (Version None)
Quarter: 2004Q3

REPORT INFORMATION
  Report Type: 
  Country: None (occurrence: None)
  Receive Date: 20040903
  Receipt Date: 20040903
  Transmission Date: 20050211
  Serious: No
  Sender: FDA-Public Use
  Company Number: None

PATIENT
  Age: 36 Year
  Sex: Female
  Weight: 71 kg

DRUGS (1)
  1. LARIAM [Suspect]
     Dosage: ONE WEEK ORAL
     Route: 048

REACTIONS (5)
  - DISORIENTATION [None]
  - DIZZINESS [None]
  - FEELING ABNORMAL [None]
  - NIGHTMARE [None]
  - TREMOR [None]
